FAERS Safety Report 5958990-1 (Version None)
Quarter: 2008Q4

REPORT INFORMATION
  Report Type: 
  Country: None (occurrence: None)
  Receive Date: 20081112
  Receipt Date: 20071025
  Transmission Date: 20090506
  Serious: Yes (Hospitalization)
  Sender: FDA-Public Use
  Company Number: 2008S1000050

PATIENT
  Age: 84 Year
  Sex: Male

DRUGS (4)
  1. CUBICIN [Suspect]
     Indication: STAPHYLOCOCCAL BACTERAEMIA
     Dosage: 6 MG/KG;Q24H;IV
     Route: 042
     Dates: start: 20070623, end: 20070817
  2. VANCOMYCIN [Concomitant]
  3. GENTAMICIN [Concomitant]
  4. CEFTAZIDIME [Concomitant]

REACTIONS (2)
  - DRUG INEFFECTIVE [None]
  - STAPHYLOCOCCAL BACTERAEMIA [None]
